FAERS Safety Report 13857622 (Version 4)
Quarter: 2018Q3

REPORT INFORMATION
  Report Type: Report from Study
  Country: GB (occurrence: GB)
  Receive Date: 20170811
  Receipt Date: 20180920
  Transmission Date: 20181010
  Serious: Yes (Death)
  Sender: FDA-Public Use
  Company Number: GB-ROCHE-1895497

PATIENT
  Sex: Male
  Weight: 6.13 kg

DRUGS (9)
  1. ESBRIET [Suspect]
     Active Substance: PIRFENIDONE
     Route: 048
  2. ORAMORPH [Concomitant]
     Active Substance: MORPHINE SULFATE
  3. ASPIRIN. [Concomitant]
     Active Substance: ASPIRIN
  4. ESBRIET [Suspect]
     Active Substance: PIRFENIDONE
     Route: 048
     Dates: start: 20160419
  5. ESBRIET [Suspect]
     Active Substance: PIRFENIDONE
     Indication: IDIOPATHIC PULMONARY FIBROSIS
     Dosage: 2 CAPSULE
     Route: 065
  6. OMEPRAZOLE. [Concomitant]
     Active Substance: OMEPRAZOLE
  7. PARACETAMOL [Concomitant]
     Active Substance: ACETAMINOPHEN
  8. CARBOCISTEINE [Concomitant]
     Active Substance: CARBOCYSTEINE
  9. ESBRIET [Suspect]
     Active Substance: PIRFENIDONE
     Indication: IDIOPATHIC PULMONARY FIBROSIS
     Route: 048

REACTIONS (12)
  - Dysphagia [Not Recovered/Not Resolved]
  - Weight decreased [Not Recovered/Not Resolved]
  - Panic reaction [Unknown]
  - Decreased appetite [Not Recovered/Not Resolved]
  - Dysgeusia [Unknown]
  - Fatigue [Not Recovered/Not Resolved]
  - Nausea [Recovered/Resolved]
  - Dyspepsia [Recovered/Resolved]
  - Productive cough [Unknown]
  - Dyspnoea [Not Recovered/Not Resolved]
  - Dyspnoea [Unknown]
  - Death [Fatal]

NARRATIVE: CASE EVENT DATE: 20160419
